FAERS Safety Report 13663364 (Version 1)
Quarter: 2017Q2

REPORT INFORMATION
  Report Type: Spontaneous
  Country: US (occurrence: US)
  Receive Date: 20170617
  Receipt Date: 20170617
  Transmission Date: 20170830
  Serious: No
  Sender: FDA-Public Use
  Company Number: None

PATIENT
  Sex: Female

DRUGS (1)
  1. ICY HOT [Suspect]
     Active Substance: MENTHOL\METHYL SALICYLATE
     Indication: MUSCLE TIGHTNESS
     Route: 061
     Dates: end: 20170617

REACTIONS (1)
  - Application site vesicles [None]

NARRATIVE: CASE EVENT DATE: 20170617
